FAERS Safety Report 4313605-3 (Version None)
Quarter: 2004Q1

REPORT INFORMATION
  Report Type: 
  Country: None (occurrence: None)
  Receive Date: 20040308
  Receipt Date: 20040127
  Transmission Date: 20041129
  Serious: Yes (Death, Life-Threatening, Hospitalization)
  Sender: FDA-Public Use
  Company Number: DE-BRISTOL-MYERS SQUIBB COMPANY-12488243

PATIENT
  Age: 81 Year
  Sex: Female
  Weight: 70 kg

DRUGS (3)
  1. KARVEZIDE TABS 300MG/12.5MG [Suspect]
     Indication: ESSENTIAL HYPERTENSION
     Dates: start: 20020301
  2. NEBILET [Suspect]
     Indication: ESSENTIAL HYPERTENSION
     Route: 048
     Dates: start: 20020301
  3. REMERGIL [Suspect]
     Indication: DEPRESSION
     Route: 048
     Dates: start: 20030601

REACTIONS (13)
  - CARDIAC ARREST [None]
  - ENTEROCOCCAL INFECTION [None]
  - GENERAL PHYSICAL HEALTH DETERIORATION [None]
  - HEPATIC ENZYME INCREASED [None]
  - HEPATIC FAILURE [None]
  - LIVER DISORDER [None]
  - PNEUMONIA BACTERIAL [None]
  - PROTHROMBIN TIME SHORTENED [None]
  - PULMONARY EMBOLISM [None]
  - PULSE ABSENT [None]
  - RENAL FAILURE [None]
  - RESPIRATORY FAILURE [None]
  - RIGHT VENTRICULAR FAILURE [None]
